FAERS Safety Report 9432877 (Version 2)
Quarter: 2014Q3

REPORT INFORMATION
  Report Type: Spontaneous
  Country: DK (occurrence: DK)
  Receive Date: 20130731
  Receipt Date: 20140902
  Transmission Date: 20150326
  Serious: Yes (Other)
  Sender: FDA-Public Use
  Company Number: PHHY2013DK079181

PATIENT
  Age: 76 Year
  Sex: Female

DRUGS (3)
  1. BONDRONAT [Suspect]
     Active Substance: IBANDRONIC ACID
     Indication: METASTASES TO BONE
     Dosage: 50 MG, UNK
     Route: 048
     Dates: start: 2008, end: 2011
  2. ZOMETA [Suspect]
     Active Substance: ZOLEDRONIC ACID
     Indication: METASTASES TO BONE
     Dosage: 4 MG / 100 ML
     Route: 042
     Dates: start: 2004, end: 2008
  3. ZOMETA [Suspect]
     Active Substance: ZOLEDRONIC ACID
     Dosage: 4 MG/100 ML
     Route: 042
     Dates: start: 2011, end: 20121002

REACTIONS (6)
  - Osteonecrosis of jaw [Recovered/Resolved]
  - Local swelling [Recovered/Resolved]
  - Gingivitis [Recovered/Resolved]
  - Jaw operation [Recovered/Resolved]
  - Exposed bone in jaw [Recovered/Resolved]
  - Loose tooth [Recovered/Resolved]

NARRATIVE: CASE EVENT DATE: 20130603
